FAERS Safety Report 4845164-0 (Version None)
Quarter: 2005Q4

REPORT INFORMATION
  Report Type: 
  Country: None (occurrence: None)
  Receive Date: 20051205
  Receipt Date: 20051130
  Transmission Date: 20060501
  Serious: Yes (Hospitalization)
  Sender: FDA-Public Use
  Company Number: 2005SE06872

PATIENT
  Age: 24923 Day
  Sex: Female

DRUGS (11)
  1. BLOPRESS TABLETS 2 [Suspect]
     Indication: HYPERTENSION
     Route: 048
     Dates: end: 20051025
  2. BENET TABLETS 2.5MG [Concomitant]
     Indication: OSTEOPOROSIS
     Route: 048
     Dates: start: 20051015
  3. PREDONINE [Concomitant]
     Indication: DERMATOMYOSITIS
     Route: 048
     Dates: start: 20051015
  4. LENDORMIN [Concomitant]
     Indication: INSOMNIA
     Route: 048
     Dates: start: 20051018, end: 20051019
  5. OLMETEC [Concomitant]
     Indication: HYPERTENSION
     Route: 048
     Dates: start: 20051018
  6. COTRIM [Concomitant]
     Indication: INFECTION PROPHYLAXIS
     Route: 048
     Dates: start: 20051018, end: 20051102
  7. GASTER D [Concomitant]
     Indication: GASTRITIS
     Route: 048
     Dates: start: 20051015
  8. PYDOXAL [Concomitant]
     Indication: HYPOVITAMINOSIS
     Route: 048
     Dates: start: 20051016, end: 20051109
  9. MUCOSTA [Concomitant]
     Indication: GASTRITIS
     Route: 048
     Dates: start: 20051015
  10. ISCOTIN [Concomitant]
     Indication: ANTIBIOTIC PROPHYLAXIS
     Route: 048
     Dates: start: 20051015, end: 20051109
  11. HALCION [Concomitant]
     Indication: INSOMNIA
     Route: 048
     Dates: start: 20051019

REACTIONS (5)
  - DERMATOMYOSITIS [None]
  - RENAL IMPAIRMENT [None]
  - RHABDOMYOLYSIS [None]
  - SCLERODERMA [None]
  - THROMBOTIC THROMBOCYTOPENIC PURPURA [None]
